FAERS Safety Report 8006151-7 (Version None)
Quarter: 2011Q4

REPORT INFORMATION
  Report Type: 
  Country: None (occurrence: None)
  Receive Date: 20111226
  Receipt Date: 20111221
  Transmission Date: 20120403
  Serious: Yes (Other)
  Sender: FDA-Public Use
  Company Number: FR-BRISTOL-MYERS SQUIBB COMPANY-16274961

PATIENT
  Age: 59 Year
  Sex: Female
  Weight: 90 kg

DRUGS (1)
  1. IPILIMUMAB [Suspect]
     Indication: MALIGNANT MELANOMA
     Dosage: 2-11JUL11.3-02AUG11
     Route: 042
     Dates: start: 20110620, end: 20110823

REACTIONS (6)
  - METASTATIC MALIGNANT MELANOMA [None]
  - URINARY TRACT INFECTION [None]
  - NEOPLASM MALIGNANT [None]
  - RENAL TUBULAR NECROSIS [None]
  - RENAL FAILURE ACUTE [None]
  - NEOPLASM PROGRESSION [None]
